FAERS Safety Report 23789950 (Version 2)
Quarter: 2024Q2

REPORT INFORMATION
  Report Type: Spontaneous
  Country: GB (occurrence: GB)
  Receive Date: 20240426
  Receipt Date: 20240615
  Transmission Date: 20240716
  Serious: Yes (Other)
  Sender: FDA-Public Use
  Company Number: None

PATIENT
  Age: 78 Year
  Sex: Male

DRUGS (23)
  1. RANOLAZINE [Suspect]
     Active Substance: RANOLAZINE
     Route: 065
  2. METFORMIN [Concomitant]
     Active Substance: METFORMIN HYDROCHLORIDE
     Dosage: 200 MG, QD
     Route: 048
  3. BECLOMETHASONE DIPROPIONATE\FORMOTEROL FUMARATE\GLYCOPYRROLATE [Concomitant]
     Active Substance: BECLOMETHASONE DIPROPIONATE\FORMOTEROL FUMARATE\GLYCOPYRROLATE
     Dosage: 172 UG/5 UG /9 UG (344 UG/10 UG /18 UG 1 IN 12 HOUR)
     Route: 055
  4. THEOPHYLLINE ANHYDROUS [Concomitant]
     Active Substance: THEOPHYLLINE ANHYDROUS
     Dosage: 600 MG, QD
     Route: 048
  5. AVEENO [Concomitant]
     Active Substance: DIMETHICONE\HOMOSALATE\OCTINOXATE\OCTISALATE\TITANIUM DIOXIDE
     Route: 065
  6. DERMOL [Concomitant]
     Active Substance: BENZALKONIUM CHLORIDE\CHLORHEXIDINE HYDROCHLORIDE\ISOPROPYL MYRISTATE\PARAFFIN
     Route: 065
  7. ALBUTEROL [Concomitant]
     Active Substance: ALBUTEROL
     Dosage: (100 MICROGRAMS/DOSE), TAKEN AS TWO DOSAGE FORMS (2.5ML 1 NEBULE (PUFFS)) 4 TIMES A DAY
     Route: 055
  8. LEVOTHYROXINE [Concomitant]
     Active Substance: LEVOTHYROXINE\LEVOTHYROXINE SODIUM
     Route: 048
  9. LANSOPRAZOLE [Concomitant]
     Active Substance: LANSOPRAZOLE
     Route: 048
  10. EZETIMIBE [Concomitant]
     Active Substance: EZETIMIBE
     Route: 048
  11. CARBOCYSTEINE [Concomitant]
     Active Substance: CARBOCYSTEINE
     Dosage: 2250 MG, QD
     Route: 048
  12. DOCUSATE [Concomitant]
     Active Substance: DOCUSATE
     Dosage: 200 MG
     Route: 048
  13. LORAZEPAM [Concomitant]
     Active Substance: LORAZEPAM
     Dosage: 0.5 MG
     Route: 048
  14. SODIUM CHLORIDE [Concomitant]
     Active Substance: SODIUM CHLORIDE
     Dosage: 0.9% NEBULISER SOLUTION, AT A DOSE OF TWO DOSAGE FORMS (NEBULES) FOUR TIMES DAILY, AS NECESSARY
     Route: 055
  15. LOSARTAN [Concomitant]
     Active Substance: LOSARTAN
     Route: 048
  16. AZITHROMYCIN [Concomitant]
     Active Substance: AZITHROMYCIN
     Dosage: 250 MG 3 TIMES A WEEK
     Route: 048
  17. FERROUS FUMARATE [Concomitant]
     Active Substance: FERROUS FUMARATE
     Route: 048
  18. NITROGLYCERIN [Concomitant]
     Active Substance: NITROGLYCERIN
     Route: 060
  19. BISOPROLOL [Concomitant]
     Active Substance: BISOPROLOL\BISOPROLOL FUMARATE
     Route: 048
  20. ISOSORBIDE MONONITRATE [Concomitant]
     Active Substance: ISOSORBIDE MONONITRATE
     Route: 048
  21. APIXABAN [Concomitant]
     Active Substance: APIXABAN
     Dosage: 10 MG, QD
     Route: 048
  22. MOMETASONE [Concomitant]
     Active Substance: MOMETASONE
     Route: 045
  23. IPRATROPIUM BROMIDE [Concomitant]
     Active Substance: IPRATROPIUM BROMIDE\IPRATROPIUM BROMIDE ANHYDROUS
     Dosage: 2000 UG, QD
     Route: 055

REACTIONS (3)
  - Oedema peripheral [Recovered/Resolved]
  - Joint swelling [Unknown]
  - Feeling abnormal [Unknown]
